FAERS Safety Report 5836339-2 (Version None)
Quarter: 2008Q3

REPORT INFORMATION
  Report Type: 
  Country: None (occurrence: None)
  Receive Date: 20080807
  Receipt Date: 20080730
  Transmission Date: 20090109
  Serious: Yes (Hospitalization, Disabling)
  Sender: FDA-Public Use
  Company Number: FR-JNJFOC-20080706844

PATIENT
  Sex: Male

DRUGS (7)
  1. HALDOL [Suspect]
     Indication: ABNORMAL BEHAVIOUR
     Route: 042
  2. ZYPREXA [Suspect]
     Indication: ABNORMAL BEHAVIOUR
     Route: 048
  3. TERCIAN [Suspect]
     Indication: ABNORMAL BEHAVIOUR
     Route: 048
  4. IMOVANE [Concomitant]
     Indication: INSOMNIA
     Route: 048
  5. PARKINANE [Concomitant]
     Route: 048
  6. EQUANIL [Concomitant]
     Indication: ABNORMAL BEHAVIOUR
     Route: 048
  7. NEUROLITHIUM [Concomitant]
     Indication: BIPOLAR I DISORDER

REACTIONS (1)
  - CEREBRAL INFARCTION [None]
